FAERS Safety Report 4451268-7 (Version None)
Quarter: 2004Q3

REPORT INFORMATION
  Report Type: 
  Country: None (occurrence: None)
  Receive Date: 20040915
  Receipt Date: 20040915
  Transmission Date: 20050211
  Serious: Yes (Disabling)
  Sender: FDA-Public Use
  Company Number: None

PATIENT
  Sex: Female
  Weight: 58.9676 kg

DRUGS (2)
  1. EFFEXOR [Suspect]
     Indication: ANXIETY
     Dosage: 37.5 ORAL
     Route: 048
     Dates: start: 20020101, end: 20040914
  2. EFFEXOR [Suspect]
     Indication: DEPRESSION
     Dosage: 37.5 ORAL
     Route: 048
     Dates: start: 20020101, end: 20040914

REACTIONS (1)
  - DRUG WITHDRAWAL SYNDROME [None]
